FAERS Safety Report 8281149 (Version 2)
Quarter: 2013Q1

REPORT INFORMATION
  Report Type: Spontaneous
  Country: US (occurrence: US)
  Receive Date: 20111209
  Receipt Date: 20130130
  Transmission Date: 20140127
  Serious: No
  Sender: FDA-Public Use
  Company Number: US-BIOGENIDEC-2011BI045653

PATIENT
  Age: 44 Year
  Sex: Female

DRUGS (6)
  1. TYSABRI [Suspect]
     Indication: MULTIPLE SCLEROSIS
     Route: 042
     Dates: start: 20111118, end: 20111222
  2. BACLOFEN [Concomitant]
     Route: 048
  3. BETASERON [Concomitant]
     Indication: MULTIPLE SCLEROSIS
     Route: 058
  4. METHYLPHENIDATE [Concomitant]
     Route: 048
  5. OXYBUTYNIN [Concomitant]
     Route: 048
  6. HYDROCODONE-ACETAMINOPHEN [Concomitant]
     Route: 048

REACTIONS (6)
  - Hypersensitivity [Recovered/Resolved]
  - Pruritus [Recovered/Resolved]
  - Urticaria [Recovered/Resolved]
  - Burning sensation [Recovered/Resolved]
  - Flushing [Recovered/Resolved]
  - Drug specific antibody present [Unknown]
